FAERS Safety Report 4311223-4 (Version None)
Quarter: 2004Q1

REPORT INFORMATION
  Report Type: 
  Country: None (occurrence: None)
  Receive Date: 20040302
  Receipt Date: 20040112
  Transmission Date: 20041129
  Serious: No
  Sender: FDA-Public Use
  Company Number: 200323829BWH

PATIENT
  Age: 70 Year
  Sex: Male

DRUGS (5)
  1. LEVITRA [Suspect]
     Indication: ERECTILE DYSFUNCTION
     Dosage: 10 MG, PRN, ORAL; 10 MG, PRN, ORAL; 10 MG, ONCE, ORAL; 10 MG, PRN, ORAL
     Route: 048
     Dates: start: 20030914
  2. LEVITRA [Suspect]
     Indication: ERECTILE DYSFUNCTION
     Dosage: 10 MG, PRN, ORAL; 10 MG, PRN, ORAL; 10 MG, ONCE, ORAL; 10 MG, PRN, ORAL
     Route: 048
     Dates: start: 20030914
  3. LEVITRA [Suspect]
     Indication: ERECTILE DYSFUNCTION
     Dosage: 10 MG, PRN, ORAL; 10 MG, PRN, ORAL; 10 MG, ONCE, ORAL; 10 MG, PRN, ORAL
     Route: 048
     Dates: start: 20030917
  4. LEVITRA [Suspect]
     Indication: ERECTILE DYSFUNCTION
     Dosage: 10 MG, PRN, ORAL; 10 MG, PRN, ORAL; 10 MG, ONCE, ORAL; 10 MG, PRN, ORAL
     Route: 048
     Dates: start: 20030918
  5. VIAGRA [Concomitant]

REACTIONS (2)
  - ERECTILE DYSFUNCTION [None]
  - INTENTIONAL OVERDOSE [None]
